FAERS Safety Report 9505147 (Version 3)
Quarter: 2013Q4

REPORT INFORMATION
  Report Type: Spontaneous
  Country: BR (occurrence: BR)
  Receive Date: 20130906
  Receipt Date: 20131001
  Transmission Date: 20140711
  Serious: Yes (Hospitalization, Other)
  Sender: FDA-Public Use
  Company Number: BR-ASTRAZENECA-2013SE66731

PATIENT
  Sex: Male

DRUGS (2)
  1. CRESTOR [Suspect]
     Indication: ARTERIAL OCCLUSIVE DISEASE
     Route: 048
     Dates: start: 2009, end: 2010
  2. GLIFAGE [Concomitant]
     Indication: DIABETES MELLITUS
     Route: 048
     Dates: start: 2004

REACTIONS (7)
  - Nephrolithiasis [Unknown]
  - Weight decreased [Unknown]
  - Muscle atrophy [Unknown]
  - Pulmonary function test decreased [Not Recovered/Not Resolved]
  - Muscular weakness [Unknown]
  - Blood creatine phosphokinase increased [Recovered/Resolved]
  - Chest pain [Unknown]
